FAERS Safety Report 9144231 (Version 2)
Quarter: 2013Q3

REPORT INFORMATION
  Report Type: Report from Study
  Country: BR (occurrence: BR)
  Receive Date: 20130306
  Receipt Date: 20130814
  Transmission Date: 20140515
  Serious: Yes (Hospitalization)
  Sender: FDA-Public Use
  Company Number: BR-ROCHE-1197405

PATIENT
  Sex: Female
  Weight: 80 kg

DRUGS (5)
  1. ACTEMRA [Suspect]
     Indication: RHEUMATOID ARTHRITIS
     Route: 065
  2. OMEPRAZOLE [Concomitant]
  3. DEFLANIL [Concomitant]
  4. DIOVAN [Concomitant]
  5. GLIFAGE [Concomitant]

REACTIONS (1)
  - Urinary tract infection [Recovering/Resolving]
